FAERS Safety Report 4567464-4 (Version None)
Quarter: 2005Q1

REPORT INFORMATION
  Report Type: 
  Country: None (occurrence: None)
  Receive Date: 20050127
  Receipt Date: 20050118
  Transmission Date: 20050727
  Serious: Yes (Death)
  Sender: FDA-Public Use
  Company Number: 2005016994

PATIENT

DRUGS (1)
  1. XALATAN [Suspect]
     Indication: GLAUCOMA
     Dosage: INTRAOCULAR
     Route: 031

REACTIONS (4)
  - CONDITION AGGRAVATED [None]
  - CORNEAL NEOVASCULARISATION [None]
  - DIABETES MELLITUS [None]
  - SKIN DEPIGMENTATION [None]
